FAERS Safety Report 4639636-1 (Version None)
Quarter: 2005Q2

REPORT INFORMATION
  Report Type: 
  Country: None (occurrence: None)
  Receive Date: 20050328
  Receipt Date: 20041220
  Transmission Date: 20051028
  Serious: No
  Sender: FDA-Public Use
  Company Number: USA041286567

PATIENT
  Age: 11 Year
  Sex: Male
  Weight: 36 kg

DRUGS (1)
  1. STRATTERA [Suspect]
     Indication: ATTENTION DEFICIT/HYPERACTIVITY DISORDER
     Dosage: 40 MG DAY
     Dates: start: 20041201

REACTIONS (6)
  - DECREASED APPETITE [None]
  - DRUG INEFFECTIVE [None]
  - INCREASED APPETITE [None]
  - PALLOR [None]
  - STOMACH DISCOMFORT [None]
  - VOMITING [None]
